FAERS Safety Report 5412359-7 (Version None)
Quarter: 2007Q3

REPORT INFORMATION
  Report Type: 
  Country: None (occurrence: None)
  Receive Date: 20070713
  Receipt Date: 20070422
  Transmission Date: 20080115
  Serious: No
  Sender: FDA-Public Use
  Company Number: 2007SP001459

PATIENT
  Age: 43 Year
  Sex: Male
  Weight: 147.419 kg

DRUGS (5)
  1. LUNESTA [Suspect]
     Indication: INSOMNIA
     Dosage: 3 MG;HS;ORAL
     Route: 048
     Dates: start: 20070418, end: 20070423
  2. CIPROFLOXACIN [Concomitant]
  3. HYDROCHLORIDE [Concomitant]
  4. VASOTEC [Concomitant]
  5. BYETTA [Concomitant]

REACTIONS (1)
  - DYSGEUSIA [None]
